FAERS Safety Report 14690558 (Version 1)
Quarter: 2018Q1

REPORT INFORMATION
  Report Type: Spontaneous
  Country: US (occurrence: US)
  Receive Date: 20180328
  Receipt Date: 20180328
  Transmission Date: 20180509
  Serious: No
  Sender: FDA-Public Use
  Company Number: US-TARO-2017TAR00377

PATIENT
  Age: 83 Year
  Sex: Female

DRUGS (1)
  1. FLUOROURACIL TOPICAL CREAM USP 5% [Suspect]
     Active Substance: FLUOROURACIL

REACTIONS (5)
  - Skin exfoliation [Unknown]
  - Skin burning sensation [Unknown]
  - Blister [Unknown]
  - Erythema [Unknown]
  - Pruritus [Unknown]
